FAERS Safety Report 24632213 (Version 1)
Quarter: 2024Q4

REPORT INFORMATION
  Report Type: Spontaneous
  Country: GB (occurrence: GB)
  Receive Date: 20241118
  Receipt Date: 20241118
  Transmission Date: 20250114
  Serious: Yes (Hospitalization, Other)
  Sender: PFIZER
  Company Number: None

PATIENT
  Age: 70 Year
  Sex: Female

DRUGS (2)
  1. MEROPENEM [Suspect]
     Active Substance: MEROPENEM
     Indication: Central nervous system infection
     Dosage: 2 G, 3X/DAY
     Dates: start: 20240915, end: 20241008
  2. LINEZOLID [Concomitant]
     Active Substance: LINEZOLID
     Indication: Central nervous system infection
     Dates: start: 20241001, end: 20241006

REACTIONS (2)
  - Neutropenia [Recovered/Resolved]
  - Neutropenic sepsis [Unknown]

NARRATIVE: CASE EVENT DATE: 20241001
